FAERS Safety Report 10235990 (Version 2)
Quarter: 2014Q2

REPORT INFORMATION
  Report Type: Spontaneous
  Country: US (occurrence: US)
  Receive Date: 20140613
  Receipt Date: 20140613
  Transmission Date: 20141212
  Serious: No
  Sender: FDA-Public Use
  Company Number: US-ASTRAZENECA-2014SE31367

PATIENT
  Sex: Male

DRUGS (8)
  1. LISINOPRIL [Suspect]
     Route: 048
  2. OMEPRAZOLE [Suspect]
     Route: 048
  3. SUTENT [Suspect]
     Route: 065
  4. LIPITOR [Concomitant]
  5. LOPID [Concomitant]
  6. ZOLOFT [Concomitant]
  7. INSULIN [Concomitant]
  8. VIT B12 [Concomitant]

REACTIONS (17)
  - Decreased appetite [Unknown]
  - Flatulence [Unknown]
  - Stomatitis [Unknown]
  - Glycosylated haemoglobin decreased [Unknown]
  - Type 1 diabetes mellitus [Unknown]
  - Ageusia [Unknown]
  - Pain [Unknown]
  - Procedural site reaction [Unknown]
  - Musculoskeletal chest pain [Unknown]
  - Sunburn [Unknown]
  - Feeling abnormal [Unknown]
  - Fatigue [Unknown]
  - Dyspepsia [Unknown]
  - Dyspepsia [Unknown]
  - Dysgeusia [Unknown]
  - Abdominal discomfort [Unknown]
  - Diarrhoea [Unknown]
